FAERS Safety Report 8909514 (Version 1)
Quarter: 2012Q4

REPORT INFORMATION
  Report Type: 
  Country: JP (occurrence: JP)
  Receive Date: 20121114
  Receipt Date: 20121114
  Transmission Date: 20130627
  Serious: Yes (Other)
  Sender: FDA-Public Use
  Company Number: JP-009507513-1211JPN004490

PATIENT
  Age: 63 Year
  Sex: Female

DRUGS (1)
  1. FOSAMAC TABLETS-5 [Suspect]
     Route: 048

REACTIONS (1)
  - Femur fracture [Not Recovered/Not Resolved]
